FAERS Safety Report 19605916 (Version 2)
Quarter: 2022Q1

REPORT INFORMATION
  Report Type: Spontaneous
  Country: US (occurrence: US)
  Receive Date: 20210723
  Receipt Date: 20220117
  Transmission Date: 20220423
  Serious: Yes (Other)
  Sender: FDA-Public Use
  Company Number: US-GILEAD-2021-0541724

PATIENT
  Sex: Male
  Weight: 107.48 kg

DRUGS (21)
  1. VIREAD [Suspect]
     Active Substance: TENOFOVIR DISOPROXIL FUMARATE
     Indication: Product used for unknown indication
     Dosage: UNK
     Route: 048
     Dates: start: 2002
  2. ATRIPLA [Suspect]
     Active Substance: EFAVIRENZ\EMTRICITABINE\TENOFOVIR DISOPROXIL FUMARATE
     Indication: HIV infection
     Dosage: UNK
     Route: 048
     Dates: start: 2002
  3. ATRIPLA [Suspect]
     Active Substance: EFAVIRENZ\EMTRICITABINE\TENOFOVIR DISOPROXIL FUMARATE
     Dosage: UNK
     Route: 048
     Dates: start: 20110606, end: 2015
  4. BIKTARVY [Concomitant]
     Active Substance: BICTEGRAVIR SODIUM\EMTRICITABINE\TENOFOVIR ALAFENAMIDE FUMARATE
  5. ACETAMINOPHEN [Concomitant]
     Active Substance: ACETAMINOPHEN
  6. AMOXICILLIN [Concomitant]
     Active Substance: AMOXICILLIN
  7. BUPRENORPHINE [Concomitant]
     Active Substance: BUPRENORPHINE
  8. CYCLOBENZAPRINE [Concomitant]
     Active Substance: CYCLOBENZAPRINE
  9. DIAZEPAM [Concomitant]
     Active Substance: DIAZEPAM
  10. ERYTHROMYCIN [Concomitant]
     Active Substance: ERYTHROMYCIN
  11. HYDROCODONE [Concomitant]
     Active Substance: HYDROCODONE
  12. IBUPROFEN [Concomitant]
     Active Substance: IBUPROFEN
  13. METHOCARBAMOL [Concomitant]
     Active Substance: METHOCARBAMOL
  14. OXYCODONE [Concomitant]
     Active Substance: OXYCODONE
  15. PAROXETINE [Concomitant]
     Active Substance: PAROXETINE
  16. PENICILLIN G [Concomitant]
     Active Substance: PENICILLIN G
  17. PRILOSEC [Concomitant]
     Active Substance: OMEPRAZOLE MAGNESIUM
  18. SUBOXONE [Concomitant]
     Active Substance: BUPRENORPHINE HYDROCHLORIDE\NALOXONE HYDROCHLORIDE
  19. SULFAMETHOXAZOLE [Concomitant]
     Active Substance: SULFAMETHOXAZOLE
  20. WELLBUTRIN [Concomitant]
     Active Substance: BUPROPION HYDROCHLORIDE
  21. ZOLPIDEM [Concomitant]
     Active Substance: ZOLPIDEM TARTRATE

REACTIONS (9)
  - Osteoporosis [Not Recovered/Not Resolved]
  - Bone density decreased [Unknown]
  - Wrist fracture [Recovered/Resolved]
  - Hand fracture [Recovered/Resolved]
  - Emotional distress [Not Recovered/Not Resolved]
  - Anhedonia [Not Recovered/Not Resolved]
  - Anxiety [Not Recovered/Not Resolved]
  - Pain [Not Recovered/Not Resolved]
  - Mobility decreased [Not Recovered/Not Resolved]

NARRATIVE: CASE EVENT DATE: 20130101
